FAERS Safety Report 17221841 (Version 5)
Quarter: 2021Q1

REPORT INFORMATION
  Report Type: Report from Study
  Country: DK (occurrence: DK)
  Receive Date: 20200101
  Receipt Date: 20210319
  Transmission Date: 20210419
  Serious: Yes (Hospitalization)
  Sender: FDA-Public Use
  Company Number: DK-ROCHE-2503759

PATIENT
  Age: 74 Year
  Sex: Male
  Weight: 73 kg

DRUGS (33)
  1. PARACETAMOL [Concomitant]
     Active Substance: ACETAMINOPHEN
     Indication: HYPERTHERMIA MALIGNANT
     Route: 048
     Dates: start: 20180122
  2. ACETYLSALISYLSYRE [Concomitant]
     Indication: THROMBOSIS PROPHYLAXIS
     Route: 048
     Dates: end: 20191030
  3. METOCLOPRAMIDE. [Concomitant]
     Active Substance: METOCLOPRAMIDE
     Indication: NAUSEA
     Route: 048
     Dates: start: 20190801, end: 20191014
  4. TINZAPARIN [Concomitant]
     Active Substance: TINZAPARIN
     Indication: THROMBOSIS
     Route: 058
     Dates: start: 20191002, end: 20191012
  5. MORPHINE [Concomitant]
     Active Substance: MORPHINE
     Indication: PAIN
     Dosage: DOSE VARIATION FROM 40 MG?180 MG
     Route: 048
     Dates: start: 20190802, end: 20200110
  6. MORPHINE [Concomitant]
     Active Substance: MORPHINE
     Route: 048
     Dates: start: 20190807, end: 20191003
  7. PHENOXYMETHYLPENICILLIN [Concomitant]
     Active Substance: PENICILLIN V
     Indication: INFECTION
     Route: 048
     Dates: start: 20190807, end: 20190903
  8. ENALAPRIL [Concomitant]
     Active Substance: ENALAPRIL
     Indication: HYPERTENSION
     Route: 048
     Dates: start: 20190729
  9. GANFORT [Concomitant]
     Active Substance: BIMATOPROST\TIMOLOL
     Dosage: TO PREVENT OCULAR HYPERTENSION
     Route: 047
  10. FERROFUMARAT [Concomitant]
     Indication: IRON DEFICIENCY ANAEMIA
     Dosage: 1 TABLET
     Route: 048
     Dates: start: 20190806
  11. ARANESP [Concomitant]
     Active Substance: DARBEPOETIN ALFA
     Indication: ANAEMIA
     Route: 058
     Dates: start: 20190919, end: 20191126
  12. MAXIDEX [Concomitant]
     Active Substance: DEXAMETHASONE
     Indication: HYPERTHERMIA MALIGNANT
     Route: 047
     Dates: start: 20180622
  13. NOVORAPID [Concomitant]
     Active Substance: INSULIN ASPART
     Indication: DIABETES MELLITUS
     Dosage: 4?8 OTHERS
     Route: 058
     Dates: start: 20190722, end: 20191014
  14. HYDROCHLORTHIAZID [Concomitant]
     Active Substance: HYDROCHLOROTHIAZIDE
     Indication: PRODUCT USED FOR UNKNOWN INDICATION
     Route: 065
  15. FUROSEMIDE. [Concomitant]
     Active Substance: FUROSEMIDE
     Indication: HYPERTENSION
     Route: 048
     Dates: start: 20170217, end: 20200131
  16. METHADONE [Concomitant]
     Active Substance: METHADONE HYDROCHLORIDE
     Indication: PAIN
     Dosage: 0.5 TABLET
     Route: 048
     Dates: start: 20190807, end: 20200110
  17. COLECALCIFEROL [Concomitant]
     Active Substance: CHOLECALCIFEROL
     Dosage: 1 TABLET ?VITAMIN SUPPLEMENT
     Route: 048
     Dates: start: 20170119
  18. NATRIUMCHLORID [Concomitant]
     Active Substance: SODIUM CHLORIDE
     Dosage: FLUID THERAPY
     Route: 042
     Dates: start: 20190724, end: 20191008
  19. MOXONIDINE [Concomitant]
     Active Substance: MOXONIDINE
     Indication: HYPERTENSION
     Route: 048
     Dates: start: 20170314
  20. FENTANYL. [Concomitant]
     Active Substance: FENTANYL
     Indication: PAIN
     Route: 062
     Dates: start: 20191002, end: 20191223
  21. NATRIUMPICOSULFAT [Concomitant]
     Active Substance: SODIUM PICOSULFATE
     Indication: CONSTIPATION
     Route: 048
     Dates: start: 20190818, end: 20191014
  22. KALIUMCHLORIDE [Concomitant]
     Route: 048
     Dates: start: 20191007, end: 20200121
  23. AMLODIPINE [Concomitant]
     Active Substance: AMLODIPINE BESYLATE
     Indication: HYPERTENSION
     Route: 048
     Dates: start: 20191005, end: 20191030
  24. CHLORAMBUCIL [Suspect]
     Active Substance: CHLORAMBUCIL
     Indication: CHRONIC LYMPHOCYTIC LEUKAEMIA
     Dosage: ON 15/AUG/2016 AT 10:00, HE RECEIVED LAST DOSE OF ORAL CHLORAMBUCIL 36 MG PRIOR TO THE ONSET OF SERI
     Route: 048
     Dates: start: 20150922
  25. METFORMIN [Concomitant]
     Active Substance: METFORMIN HYDROCHLORIDE
     Indication: TYPE 2 DIABETES MELLITUS
     Route: 048
  26. OBINUTUZUMAB. [Suspect]
     Active Substance: OBINUTUZUMAB
     Indication: CHRONIC LYMPHOCYTIC LEUKAEMIA
     Dosage: ON 09/FEB/2016 AT 09:15, HE RECEIVED LAST DOSE OF INTRAVENOUS OBINUTUZUMAB 1000 MG PRIOR TO THE ONSE
     Route: 042
     Dates: start: 20150922
  27. ENALAPRIL [Concomitant]
     Active Substance: ENALAPRIL
     Route: 048
     Dates: start: 20190808
  28. DORZOLAMIDE [Concomitant]
     Active Substance: DORZOLAMIDE
     Indication: GLAUCOMA
     Route: 047
     Dates: start: 20160331
  29. METOPROLOL. [Concomitant]
     Active Substance: METOPROLOL
     Indication: HYPERTENSION
     Route: 048
     Dates: start: 20160920
  30. PARACETAMOL [Concomitant]
     Active Substance: ACETAMINOPHEN
     Indication: PAIN
     Route: 048
     Dates: start: 20190807, end: 20200207
  31. NOVOMIX [Concomitant]
     Active Substance: INSULIN ASPART
     Indication: DIABETES MELLITUS
     Route: 058
     Dates: start: 20170818
  32. MAGNESIUM [Concomitant]
     Active Substance: MAGNESIUM
     Route: 048
     Dates: start: 20191009, end: 20191016
  33. SIMVASTATIN. [Concomitant]
     Active Substance: SIMVASTATIN
     Dosage: PROPHYLAXIS HYPERCHOLESTEROLAMEMIA
     Route: 048

REACTIONS (1)
  - Staphylococcal bacteraemia [Recovered/Resolved]

NARRATIVE: CASE EVENT DATE: 20190928
